FAERS Safety Report 4784245-7 (Version None)
Quarter: 2005Q3

REPORT INFORMATION
  Report Type: 
  Country: None (occurrence: None)
  Receive Date: 20050928
  Receipt Date: 20050916
  Transmission Date: 20060218
  Serious: Yes (Hospitalization)
  Sender: FDA-Public Use
  Company Number: 2005BI015013

PATIENT
  Age: 61 Year
  Sex: Female

DRUGS (2)
  1. AVONEX [Suspect]
     Indication: MULTIPLE SCLEROSIS
     Dosage: 30 UG;QW; IM
     Route: 030
     Dates: start: 20031209
  2. GLUCOPHAGE [Concomitant]

REACTIONS (5)
  - BLOOD GLUCOSE DECREASED [None]
  - DEHYDRATION [None]
  - DIABETES MELLITUS [None]
  - HYPOTENSION [None]
  - SYNCOPE [None]
